FAERS Safety Report 4900663-8 (Version None)
Quarter: 2006Q1

REPORT INFORMATION
  Report Type: 
  Country: None (occurrence: None)
  Receive Date: 20060201
  Receipt Date: 20060123
  Transmission Date: 20060701
  Serious: Yes (Other)
  Sender: FDA-Public Use
  Company Number: 2005001069

PATIENT
  Sex: Female

DRUGS (4)
  1. OGEN [Suspect]
     Indication: HORMONE REPLACEMENT THERAPY
  2. MEDROXYPROGESTERONE [Suspect]
     Indication: HORMONE REPLACEMENT THERAPY
  3. PREMPRO [Suspect]
     Indication: HORMONE REPLACEMENT THERAPY
  4. ESTROGENS (ESTROGENS) [Suspect]
     Indication: HORMONE REPLACEMENT THERAPY

REACTIONS (1)
  - BREAST CANCER FEMALE [None]
